FAERS Safety Report 24259536 (Version 3)
Quarter: 2024Q4

REPORT INFORMATION
  Report Type: Spontaneous
  Country: GB (occurrence: GB)
  Receive Date: 20240828
  Receipt Date: 20241014
  Transmission Date: 20250115
  Serious: Yes (Death, Hospitalization, Other)
  Sender: TEVA
  Company Number: None

PATIENT
  Age: 54 Year
  Sex: Male
  Weight: 80 kg

DRUGS (4)
  1. WARFARIN [Suspect]
     Active Substance: WARFARIN
     Indication: Anticoagulant therapy
  2. DALTEPARIN [Concomitant]
     Active Substance: DALTEPARIN
     Indication: Aortic valve replacement
  3. CLOZAPINE [Suspect]
     Active Substance: CLOZAPINE
     Indication: Schizophrenia
     Route: 065
  4. HEPARIN [Concomitant]
     Active Substance: HEPARIN SODIUM
     Indication: Aortic valve replacement

REACTIONS (11)
  - Respiratory failure [Fatal]
  - Haematoma muscle [Not Recovered/Not Resolved]
  - Lower respiratory tract infection [Not Recovered/Not Resolved]
  - Pericardial effusion [Not Recovered/Not Resolved]
  - Haemothorax [Not Recovered/Not Resolved]
  - Drug interaction [Not Recovered/Not Resolved]
  - Bronchial haemorrhage [Not Recovered/Not Resolved]
  - Embolism [Not Recovered/Not Resolved]
  - Vascular pseudoaneurysm [Not Recovered/Not Resolved]
  - Peripheral artery occlusion [Not Recovered/Not Resolved]
  - Spontaneous haemorrhage [Fatal]

NARRATIVE: CASE EVENT DATE: 20240203
